FAERS Safety Report 25366823 (Version 1)
Quarter: 2025Q2

REPORT INFORMATION
  Report Type: Spontaneous
  Country: DE (occurrence: DE)
  Receive Date: 20250528
  Receipt Date: 20250528
  Transmission Date: 20250716
  Serious: Yes (Other)
  Sender: AMGEN
  Company Number: DE-AMGEN-DEUSP2025100374

PATIENT
  Age: 13 Year
  Sex: Female

DRUGS (2)
  1. FILGRASTIM [Suspect]
     Active Substance: FILGRASTIM
     Indication: Infantile genetic agranulocytosis
     Dosage: 30 MICROGRAM/KILOGRAM, QD
     Route: 065
     Dates: start: 2012
  2. HUMAN IMMUNOGLOBULIN G [Suspect]
     Active Substance: HUMAN IMMUNOGLOBULIN G
     Indication: Neutropenia
     Route: 040

REACTIONS (7)
  - Deafness neurosensory [Unknown]
  - Autism spectrum disorder [Unknown]
  - Post thrombotic syndrome [Unknown]
  - Dermatitis atopic [Unknown]
  - Myopia [Unknown]
  - Foot deformity [Unknown]
  - Pulpitis dental [Unknown]
